FAERS Safety Report 8336980-1 (Version None)
Quarter: 2012Q2

REPORT INFORMATION
  Report Type: 
  Country: None (occurrence: None)
  Receive Date: 20120504
  Receipt Date: 20120426
  Transmission Date: 20120825
  Serious: Yes (Hospitalization)
  Sender: FDA-Public Use
  Company Number: DK-SANOFI-AVENTIS-2012SA029774

PATIENT
  Age: 76 Year
  Sex: Female
  Weight: 70 kg

DRUGS (18)
  1. PREDNISOLONE [Suspect]
     Route: 065
  2. FLUTICASONE PROPIONATE/SALMETEROL [Suspect]
     Dosage: PHARMACEUTICAL FORM: 112
     Route: 065
  3. ACETAMINOPHEN [Suspect]
     Dosage: PHARMACEUTICAL FORM: 59
     Route: 065
  4. LOSARTAN POTASSIUM [Suspect]
     Dosage: PHARMACEUTICAL FORM: 82
     Route: 065
  5. BERODUAL [Suspect]
     Dosage: PHARMACEUTICAL FORM: 206
     Route: 065
  6. SPIRIVA [Suspect]
     Dosage: PHARMACEUTICAL FORM: 111
     Route: 065
  7. FUROSEMIDE [Suspect]
     Dosage: PHARMACEUTICAL FORM: 245
     Route: 065
  8. VERAPAMIL [Suspect]
     Dosage: PHARMACEUTICAL FORM: 212
     Route: 065
  9. BRICANYL [Suspect]
     Dosage: PHARMACEUTICAL FORM: 110
     Route: 065
  10. DIGOXIN [Suspect]
     Dosage: PHARMACEUTICAL FORM: 212
     Route: 065
  11. POTASSIUM CHLORIDE [Concomitant]
  12. SERTRALINE HYDROCHLORIDE [Suspect]
     Dosage: PHARMACEUTICAL FORM: 82
     Route: 065
  13. SIMVASTATIN [Suspect]
     Route: 065
  14. DUOVENT [Suspect]
     Dosage: PHARMACEUTICAL FORM: 154
     Route: 065
  15. ZOLPIDEM TARTRATE [Suspect]
     Dosage: PHARMACEUTICAL FORM: 82
     Route: 065
  16. DABIGATRAN ETEXILATE [Suspect]
     Indication: ILL-DEFINED DISORDER
     Dosage: DOSIS: 150MG X 2, STYRKE: 150 MG
     Route: 048
     Dates: start: 20111205, end: 20120424
  17. OXAZEPAM [Suspect]
     Dosage: PHARMACEUTICAL FORM: 245
     Route: 065
  18. MORPHINE SULFATE [Suspect]
     Dosage: PHARMACEUTICAL FORM: 212
     Route: 065

REACTIONS (1)
  - IRON DEFICIENCY ANAEMIA [None]
